FAERS Safety Report 7503164-6 (Version None)
Quarter: 2011Q2

REPORT INFORMATION
  Report Type: 
  Country: None (occurrence: None)
  Receive Date: 20110525
  Receipt Date: 20101101
  Transmission Date: 20111010
  Serious: No
  Sender: FDA-Public Use
  Company Number: US-NOVEN-ALL1-2010-05716

PATIENT
  Age: 8 Year
  Sex: Male
  Weight: 28.571 kg

DRUGS (2)
  1. ASPIRIN [Concomitant]
     Dosage: 82 MG, 1X/DAY:QD
     Route: 048
     Dates: start: 20030101
  2. DAYTRANA [Suspect]
     Dosage: 15 MG, 1X/DAY:QD
     Route: 062
     Dates: start: 20090101

REACTIONS (1)
  - DRUG INEFFECTIVE [None]
